FAERS Safety Report 8606736-0 (Version None)
Quarter: 2012Q3

REPORT INFORMATION
  Report Type: 
  Country: None (occurrence: None)
  Receive Date: 20120820
  Receipt Date: 20120510
  Transmission Date: 20120928
  Serious: No
  Sender: FDA-Public Use
  Company Number: US-009507513-1208USA006357

PATIENT

DRUGS (1)
  1. COPPERTONE WATER BABIES PURE + SIMPLE LOTION SPF 50 [Suspect]
     Indication: PRODUCT USED FOR UNKNOWN INDICATION
     Dosage: UNK, UNKNOWN

REACTIONS (2)
  - DRY SKIN [None]
  - APPLICATION SITE DISCOLOURATION [None]
